FAERS Safety Report 8172799 (Version 5)
Quarter: 2014Q1

REPORT INFORMATION
  Report Type: Spontaneous
  Country: US (occurrence: US)
  Receive Date: 20111007
  Receipt Date: 20140124
  Transmission Date: 20141002
  Serious: Yes (Other)
  Sender: FDA-Public Use
  Company Number: US-GLAXOSMITHKLINE-B0753127A

PATIENT
  Age: 60 Year
  Sex: Male
  Weight: 138.2 kg

DRUGS (2)
  1. AVANDIA [Suspect]
     Indication: DIABETES MELLITUS
     Dosage: 8MG PER DAY
     Route: 048
     Dates: start: 20050527, end: 200801
  2. GLUCOPHAGE [Concomitant]

REACTIONS (5)
  - Cerebrovascular accident [Not Recovered/Not Resolved]
  - Myocardial ischaemia [Unknown]
  - Chest pain [Unknown]
  - Muscular weakness [Unknown]
  - Balance disorder [Unknown]
